FAERS Safety Report 14218451 (Version 1)
Quarter: 2017Q4

REPORT INFORMATION
  Report Type: Spontaneous
  Country: US (occurrence: US)
  Receive Date: 20171123
  Receipt Date: 20171123
  Transmission Date: 20180321
  Serious: No
  Sender: FDA-Public Use
  Company Number: US-BEH-2017085219

PATIENT
  Sex: Male
  Weight: 136.5 kg

DRUGS (34)
  1. HIZENTRA [Suspect]
     Active Substance: HUMAN IMMUNOGLOBULIN G
     Indication: IMMUNODEFICIENCY COMMON VARIABLE
     Dosage: 7 G, QW
     Route: 058
     Dates: start: 20171013
  2. FUROSEMIDE. [Concomitant]
     Active Substance: FUROSEMIDE
  3. PROMETHAZINE [Concomitant]
     Active Substance: PROMETHAZINE\PROMETHAZINE HYDROCHLORIDE
  4. MELATONIN [Concomitant]
     Active Substance: MELATONIN
  5. VICTOZA [Concomitant]
     Active Substance: LIRAGLUTIDE
  6. HIZENTRA [Suspect]
     Active Substance: HUMAN IMMUNOGLOBULIN G
     Dosage: UNK
     Route: 058
  7. ACETAMINOPHEN. [Concomitant]
     Active Substance: ACETAMINOPHEN
  8. EPINEPHRINE. [Concomitant]
     Active Substance: EPINEPHRINE
  9. ROPINIROLE. [Concomitant]
     Active Substance: ROPINIROLE
  10. FINASTERIDE. [Concomitant]
     Active Substance: FINASTERIDE
  11. LMX                                /00033401/ [Concomitant]
  12. AZELASTINE. [Concomitant]
     Active Substance: AZELASTINE HYDROCHLORIDE
  13. ARIPIPRAZOLE. [Concomitant]
     Active Substance: ARIPIPRAZOLE
  14. NEURONTIN [Concomitant]
     Active Substance: GABAPENTIN
  15. METFORMIN [Concomitant]
     Active Substance: METFORMIN HYDROCHLORIDE
  16. CARVEDILOL. [Concomitant]
     Active Substance: CARVEDILOL
  17. SPIRIVA [Concomitant]
     Active Substance: TIOTROPIUM BROMIDE MONOHYDRATE
  18. DIAZEPAM. [Concomitant]
     Active Substance: DIAZEPAM
  19. HIZENTRA [Suspect]
     Active Substance: HUMAN IMMUNOGLOBULIN G
     Dosage: UNK
     Route: 058
  20. DIFLUCAN [Concomitant]
     Active Substance: FLUCONAZOLE
  21. CLOPIDOGREL [Concomitant]
     Active Substance: CLOPIDOGREL BISULFATE
  22. ADVAIR HFA [Concomitant]
     Active Substance: FLUTICASONE PROPIONATE\SALMETEROL XINAFOATE
  23. SPIRONOLACTONE. [Concomitant]
     Active Substance: SPIRONOLACTONE
  24. DIPHENHYDRAMINE. [Concomitant]
     Active Substance: DIPHENHYDRAMINE
  25. PROAIR HFA [Concomitant]
     Active Substance: ALBUTEROL SULFATE
  26. ORITAVANCIN. [Concomitant]
     Active Substance: ORITAVANCIN
  27. HIZENTRA [Suspect]
     Active Substance: HUMAN IMMUNOGLOBULIN G
     Dosage: UNK
     Route: 058
  28. ELIQUIS [Concomitant]
     Active Substance: APIXABAN
  29. MUPIROCIN. [Concomitant]
     Active Substance: MUPIROCIN
  30. OXCARBAZEPINE. [Concomitant]
     Active Substance: OXCARBAZEPINE
  31. VALSARTAN. [Concomitant]
     Active Substance: VALSARTAN
  32. HYDROXYZINE [Concomitant]
     Active Substance: HYDROXYZINE HYDROCHLORIDE
  33. XOPENEX [Concomitant]
     Active Substance: LEVALBUTEROL HYDROCHLORIDE
  34. TAMSULOSIN [Concomitant]
     Active Substance: TAMSULOSIN

REACTIONS (5)
  - Decreased appetite [Unknown]
  - Hyperhidrosis [Unknown]
  - Cough [Unknown]
  - Agitation [Unknown]
  - Hypersomnia [Unknown]
